FAERS Safety Report 7307572-8 (Version None)
Quarter: 2011Q1

REPORT INFORMATION
  Report Type: 
  Country: None (occurrence: None)
  Receive Date: 20110223
  Receipt Date: 20110223
  Transmission Date: 20110831
  Serious: Yes (Other)
  Sender: FDA-Public Use
  Company Number: None

PATIENT
  Age: 34 Year
  Sex: Female
  Weight: 102.0593 kg

DRUGS (1)
  1. ALCOHOL SWABS TRIAD [Suspect]
     Indication: THERAPEUTIC SKIN CARE TOPICAL
     Dosage: 1 WIPE EVERY 3 DAYS

REACTIONS (2)
  - PRODUCT QUALITY ISSUE [None]
  - SKIN IRRITATION [None]
